FAERS Safety Report 21068413 (Version 1)
Quarter: 2022Q3

REPORT INFORMATION
  Report Type: Spontaneous
  Country: FR (occurrence: FR)
  Receive Date: 20220712
  Receipt Date: 20220712
  Transmission Date: 20221026
  Serious: Yes (Other)
  Sender: FDA-Public Use
  Company Number: FR-BAYER-2022P002516

PATIENT
  Age: 47 Year
  Sex: Female

DRUGS (1)
  1. KYLEENA [Suspect]
     Active Substance: LEVONORGESTREL
     Indication: Contraception
     Dosage: 17.5?G/DAY
     Route: 015
     Dates: start: 20220125, end: 20220316

REACTIONS (6)
  - Pregnancy with contraceptive device [None]
  - Haemorrhage in pregnancy [None]
  - Abortion spontaneous [None]
  - Drug ineffective [None]
  - Abdominal pain lower [None]
  - Shock haemorrhagic [None]

NARRATIVE: CASE EVENT DATE: 20220316
